FAERS Safety Report 8803552 (Version 3)
Quarter: 2013Q1

REPORT INFORMATION
  Report Type: Spontaneous
  Country: US (occurrence: US)
  Receive Date: 20120924
  Receipt Date: 20130211
  Transmission Date: 20140127
  Serious: No
  Sender: FDA-Public Use
  Company Number: US-009507513-1208USA008870

PATIENT
  Sex: Male

DRUGS (5)
  1. RIBAVIRIN [Suspect]
     Indication: HEPATITIS C
     Dosage: UNK
     Route: 048
     Dates: start: 20040102, end: 20041204
  2. RIBAVIRIN [Suspect]
     Dosage: 200MG, QD
     Route: 048
     Dates: start: 20120623
  3. RIBAVIRIN [Suspect]
     Dosage: 2 DF, QD
     Route: 048
  4. VICTRELIS [Suspect]
     Indication: HEPATITIS C
     Dosage: UNK
     Route: 048
     Dates: start: 20120721
  5. PEGASYS [Suspect]
     Indication: HEPATITIS C
     Dosage: UNK
     Dates: start: 20120623

REACTIONS (20)
  - Hepatitis C [Unknown]
  - Rash [Unknown]
  - Pruritus [Unknown]
  - Cough [Unknown]
  - Respiratory disorder [Unknown]
  - Oropharyngeal pain [Unknown]
  - Insomnia [Unknown]
  - Epistaxis [Unknown]
  - Anaemia [Unknown]
  - Decreased appetite [Unknown]
  - Musculoskeletal disorder [Unknown]
  - Metabolic disorder [Unknown]
  - Anaemia [Unknown]
  - Pruritus [Unknown]
  - Rash [Unknown]
  - Mouth ulceration [Unknown]
  - Oral pain [Unknown]
  - Tongue disorder [Unknown]
  - Gastrointestinal disorder [Unknown]
  - Glossodynia [Unknown]
